FAERS Safety Report 7391600-8 (Version None)
Quarter: 2011Q2

REPORT INFORMATION
  Report Type: 
  Country: None (occurrence: None)
  Receive Date: 20110404
  Receipt Date: 20110330
  Transmission Date: 20111010
  Serious: Yes (Death, Other)
  Sender: FDA-Public Use
  Company Number: PHHY2011US25925

PATIENT
  Sex: Male

DRUGS (10)
  1. LASIX [Concomitant]
  2. COREG [Concomitant]
  3. SPIRONOLACTONE [Concomitant]
  4. DIOVAN [Suspect]
     Dosage: 160 MG
  5. COUMADIN [Concomitant]
  6. MULTI-VITAMINS [Concomitant]
  7. DIOVAN [Suspect]
     Dosage: 320 MG, UNK
  8. FLOMAX [Concomitant]
  9. ASPIRIN [Concomitant]
  10. CALCIUM [Concomitant]

REACTIONS (5)
  - ISCHAEMIC CARDIOMYOPATHY [None]
  - CARDIO-RESPIRATORY ARREST [None]
  - DIZZINESS [None]
  - VENTRICULAR FIBRILLATION [None]
  - FALL [None]
